FAERS Safety Report 5363670-X (Version None)
Quarter: 2007Q2

REPORT INFORMATION
  Report Type: 
  Country: None (occurrence: None)
  Receive Date: 20070618
  Receipt Date: 20070618
  Transmission Date: 20071010
  Serious: Yes (Death)
  Sender: FDA-Public Use
  Company Number: None

PATIENT
  Age: 64 Year
  Sex: Female
  Weight: 99.7913 kg

DRUGS (4)
  1. COUMADIN [Suspect]
     Indication: DEEP VEIN THROMBOSIS
     Dates: start: 20070530, end: 20070601
  2. COUMADIN [Suspect]
     Indication: PULMONARY THROMBOSIS
     Dates: start: 20070530, end: 20070601
  3. LOVENOX [Concomitant]
  4. ENTERIC ASPIRIN [Concomitant]

REACTIONS (6)
  - DRUG DISPENSING ERROR [None]
  - DRUG PRESCRIBING ERROR [None]
  - HAEMORRHAGE [None]
  - INCORRECT DOSE ADMINISTERED [None]
  - MEDICATION ERROR [None]
  - SKIN LACERATION [None]
